FAERS Safety Report 21515067 (Version 1)
Quarter: 2022Q4

REPORT INFORMATION
  Report Type: Spontaneous
  Country: US (occurrence: US)
  Receive Date: 20221027
  Receipt Date: 20221027
  Transmission Date: 20230113
  Serious: No
  Sender: FDA-Public Use
  Company Number: US-PFIZER INC-PV202200091137

PATIENT
  Age: 74 Year
  Sex: Female

DRUGS (3)
  1. IBRANCE [Suspect]
     Active Substance: PALBOCICLIB
     Indication: Breast cancer female
     Dosage: 100 MG, CYCLIC (100MG DAILY THREE WEEKS OUT OF EVERY FOUR)
  2. ANASTROZOLE [Concomitant]
     Active Substance: ANASTROZOLE
     Dosage: UNK, DAILY
  3. ZOLEDRONIC ACID [Concomitant]
     Active Substance: ZOLEDRONIC ACID
     Dosage: UNK (QUARTERLY INTRAVENOUS ZOLEDRONIC ACID INFUSIONS)
     Route: 042

REACTIONS (3)
  - Abdominal pain [Unknown]
  - Haemoglobin decreased [Recovering/Resolving]
  - Abdominal pain upper [Unknown]
